FAERS Safety Report 23526427 (Version 2)
Quarter: 2024Q1

REPORT INFORMATION
  Report Type: Spontaneous
  Country: US (occurrence: US)
  Receive Date: 20240215
  Receipt Date: 20240228
  Transmission Date: 20240410
  Serious: No
  Sender: FDA-Public Use
  Company Number: US-BRISTOL-MYERS SQUIBB COMPANY-2024-024062

PATIENT
  Age: 72 Year
  Sex: Female
  Weight: 77.11 kg

DRUGS (1)
  1. REVLIMID [Suspect]
     Active Substance: LENALIDOMIDE
     Indication: Plasma cell myeloma
     Dosage: FREQUENCY: DAILY FOR 14 DAYS.
     Route: 048

REACTIONS (7)
  - Muscular weakness [Unknown]
  - Gait inability [Unknown]
  - Off label use [Unknown]
  - Pain [Unknown]
  - Paraesthesia [Unknown]
  - Asthenia [Unknown]
  - Hypoaesthesia [Unknown]
